FAERS Safety Report 23098824 (Version 2)
Quarter: 2024Q2

REPORT INFORMATION
  Report Type: Spontaneous
  Country: PK (occurrence: PK)
  Receive Date: 20231024
  Receipt Date: 20240506
  Transmission Date: 20240716
  Serious: Yes (Other)
  Sender: FDA-Public Use
  Company Number: PK-PFIZER INC-2020287809

PATIENT
  Age: 36 Year
  Sex: Female

DRUGS (21)
  1. ENBREL [Suspect]
     Active Substance: BENZYL ALCOHOL\ETANERCEPT
     Indication: Rheumatoid arthritis
     Dosage: 50 MG, WEEKLY
     Route: 058
     Dates: start: 2014, end: 202107
  2. ENBREL [Suspect]
     Active Substance: BENZYL ALCOHOL\ETANERCEPT
     Dosage: 50 MG, EVERY 10TH DAY
     Route: 058
     Dates: start: 20220328
  3. HYDROXYCHLOROQUINE SULFATE [Concomitant]
     Active Substance: HYDROXYCHLOROQUINE SULFATE
     Dosage: 400 MG 1+0+1+0, AFTER MEAL, IF OCT OKAY
     Route: 065
     Dates: start: 2012
  4. HYDROXYCHLOROQUINE SULFATE [Concomitant]
     Active Substance: HYDROXYCHLOROQUINE SULFATE
     Dosage: 400 MG, DAILY (1+0+1+0, AFTER MEAL), CONTINUE/1+1 IN MORNING AND EVENING
     Dates: start: 2013
  5. HYDROXYCHLOROQUINE SULFATE [Concomitant]
     Active Substance: HYDROXYCHLOROQUINE SULFATE
     Dosage: 200 MG, 1X/DAY
     Route: 065
  6. HYDROXYCHLOROQUINE SULFATE [Concomitant]
     Active Substance: HYDROXYCHLOROQUINE SULFATE
     Dosage: 200 MG (1+0+1+0, AFTER MEAL, 1+1 IN MORNING AND EVENING AFTER MEAL CONTINUE IF OCT OKAY)
  7. FOLIC ACID [Concomitant]
     Active Substance: FOLIC ACID
     Dosage: 1 DF, 1X/DAY AFTER MEAL
  8. CAC [Concomitant]
     Dosage: 1 DF, 1X/DAY AFTER MEAL
  9. PANADOL [Concomitant]
     Active Substance: ACETAMINOPHEN
     Indication: Pain
     Dosage: 2 DF, 1X/DAY AFTER MEAL, WHEN REQUIRED FOR PAIN
  10. Sunny d [Concomitant]
     Dosage: 1 DF, 1X/DAY
  11. Sunny d [Concomitant]
     Dosage: 1 DF (1X CAPSULES, ONCE IN TWO MONTHS CONTINUE)
  12. DICLOFENAC SODIUM [Concomitant]
     Active Substance: DICLOFENAC\DICLOFENAC SODIUM
     Dosage: 0 X APPLY LOCALLY, 3X/DAY CONTINUE
  13. DELTACORTRIL [Concomitant]
     Active Substance: PREDNISOLONE
     Dosage: 5 MG, DAILY, AFTER MEAL,1 TAB IN MORNING, AFTER MEAL, CONTINUE/TAPER VERY SLOWY.
     Dates: start: 2010
  14. DELTACORTRIL [Concomitant]
     Active Substance: PREDNISOLONE
     Dosage: 5 MG 1+0+0+0, AFTER MEAL
  15. SULFASALAZINE [Concomitant]
     Active Substance: SULFASALAZINE
     Dosage: 500MG: 1+0+1+0, IN MORNING AND EVENING, AFTER MEAL
     Dates: start: 202205
  16. SULFASALAZINE [Concomitant]
     Active Substance: SULFASALAZINE
     Dosage: 1 MG, DAILY
  17. NUBEROL [Concomitant]
     Indication: Pain
     Dosage: 1 TAB, 0+0+1+0, EVENING AFTER MEAL CONTINUE
  18. Phlogin [Concomitant]
     Indication: Pain
     Dosage: 1 CAP IN MORNING AFTER MEAL
     Route: 065
  19. ZESTRIL [Concomitant]
     Active Substance: LISINOPRIL
     Dosage: 5 MG 0+0+1+0
  20. Risek [Concomitant]
     Dosage: 40 MG 1+0+0+0, BEFORE MEAL BREAKFAST
  21. EVION [Concomitant]
     Active Substance: .ALPHA.-TOCOPHEROL ACETATE
     Dosage: 400 MG CAP 1 X TABLETS, ONCE A DAY 1 CONTINUE FOR 1 MONTH

REACTIONS (19)
  - Typhoid fever [Unknown]
  - Arthralgia [Unknown]
  - Joint swelling [Unknown]
  - Musculoskeletal stiffness [Unknown]
  - Headache [Unknown]
  - Hypertension [Unknown]
  - Blood pressure fluctuation [Unknown]
  - Obesity [Unknown]
  - Dyslipidaemia [Unknown]
  - Creatinine urine increased [Unknown]
  - Fall [Unknown]
  - Neck pain [Unknown]
  - Oedema peripheral [Unknown]
  - Osteoarthritis [Unknown]
  - Bone lesion [Unknown]
  - Joint warmth [Unknown]
  - Joint range of motion decreased [Unknown]
  - Joint dislocation [Unknown]
  - Off label use [Unknown]

NARRATIVE: CASE EVENT DATE: 20200601
